FAERS Safety Report 8956177 (Version 2)
Quarter: 2012Q4

REPORT INFORMATION
  Report Type: 
  Country: GB (occurrence: GB)
  Receive Date: 20121210
  Receipt Date: 20121220
  Transmission Date: 20130627
  Serious: Yes (Other)
  Sender: FDA-Public Use
  Company Number: GB-JNJFOC-20121200167

PATIENT
  Age: 80 Year
  Sex: Female

DRUGS (5)
  1. PARACETAMOL [Suspect]
     Indication: PAIN
     Route: 048
     Dates: start: 20121101, end: 20121107
  2. FLIXOTIDE [Concomitant]
     Route: 045
  3. LORATADINE [Concomitant]
  4. TRAXAM [Concomitant]
  5. VENTOLIN [Concomitant]
     Route: 045

REACTIONS (4)
  - Hypersensitivity [Recovered/Resolved]
  - Throat irritation [Recovered/Resolved]
  - Pigmentation disorder [Recovered/Resolved]
  - Oral pain [Recovered/Resolved]
